FAERS Safety Report 6740778-5 (Version None)
Quarter: 2010Q2

REPORT INFORMATION
  Report Type: 
  Country: None (occurrence: None)
  Receive Date: 20100524
  Receipt Date: 20100510
  Transmission Date: 20101027
  Serious: Yes (Hospitalization)
  Sender: FDA-Public Use
  Company Number: 2010PL000057

PATIENT
  Sex: Female

DRUGS (3)
  1. LOTRONEX [Suspect]
     Indication: DIARRHOEA
     Dosage: 1 MG; QD
     Dates: start: 20050101
  2. LOTRONEX [Suspect]
     Indication: IRRITABLE BOWEL SYNDROME
     Dosage: 1 MG; QD
     Dates: start: 20050101
  3. NSAID'S [Concomitant]

REACTIONS (1)
  - PANCREATITIS [None]
